FAERS Safety Report 4384494-6 (Version None)
Quarter: 2004Q2

REPORT INFORMATION
  Report Type: 
  Country: None (occurrence: None)
  Receive Date: 20040607
  Receipt Date: 20030806
  Transmission Date: 20050107
  Serious: Yes (Other)
  Sender: FDA-Public Use
  Company Number: 344314

PATIENT

DRUGS (2)
  1. ACCUTANE [Suspect]
     Indication: DRUG USE FOR UNKNOWN INDICATION
     Dates: start: 19990615, end: 20030526
  2. NUVARING (ETHINYL ESTRADIOL/ETONOGESTREL) [Concomitant]

REACTIONS (3)
  - NO ADVERSE DRUG EFFECT [None]
  - NORMAL NEWBORN [None]
  - PREGNANCY [None]
